FAERS Safety Report 7520869-1 (Version None)
Quarter: 2011Q2

REPORT INFORMATION
  Report Type: 
  Country: None (occurrence: None)
  Receive Date: 20110603
  Receipt Date: 20101117
  Transmission Date: 20111010
  Serious: Yes (Other)
  Sender: FDA-Public Use
  Company Number: JP-BAYER-201015013BYL

PATIENT
  Age: 94 Year
  Sex: Female

DRUGS (5)
  1. DIAZEPAM [Concomitant]
     Dosage: TUBE FEEDING
     Route: 050
     Dates: start: 20100630
  2. AVELOX [Suspect]
     Indication: PNEUMONIA
     Dosage: AT EACH DINNER, TUBE FEEDING
     Route: 050
     Dates: start: 20100915, end: 20100920
  3. LASIX [Concomitant]
     Dosage: TUBE FEEDING
     Route: 050
     Dates: start: 20100721
  4. NORVASC [Concomitant]
     Dosage: TUBE FEEDING
     Route: 050
     Dates: start: 20100630
  5. PHENYTOIN [Concomitant]
     Dosage: TUBE FEEDING
     Route: 050
     Dates: start: 20100630

REACTIONS (1)
  - HYPOGLYCAEMIA [None]
